FAERS Safety Report 8985693 (Version 1)
Quarter: 2012Q4

REPORT INFORMATION
  Report Type: 
  Country: SK (occurrence: SK)
  Receive Date: 20121226
  Receipt Date: 20121226
  Transmission Date: 20130627
  Serious: Yes (Other)
  Sender: FDA-Public Use
  Company Number: SK-JNJFOC-20121209828

PATIENT
  Age: 52 Year
  Sex: Male

DRUGS (4)
  1. INFLIXIMAB, RECOMBINANT [Suspect]
     Indication: CROHN^S DISEASE
     Route: 042
     Dates: start: 20110113
  2. INFLIXIMAB, RECOMBINANT [Suspect]
     Indication: CROHN^S DISEASE
     Route: 042
     Dates: start: 201211
  3. PENTASA [Concomitant]
     Indication: CROHN^S DISEASE
     Route: 065
  4. GOPTEN [Concomitant]
     Indication: HYPERTENSION
     Route: 065

REACTIONS (1)
  - Herpes zoster [Recovered/Resolved]
